FAERS Safety Report 24615330 (Version 2)
Quarter: 2025Q1

REPORT INFORMATION
  Report Type: Spontaneous
  Country: US (occurrence: US)
  Receive Date: 20241113
  Receipt Date: 20250115
  Transmission Date: 20250409
  Serious: No
  Sender: SANOFI AVENTIS
  Company Number: US-SA-2024SA328551

PATIENT
  Age: 77 Year
  Sex: Female

DRUGS (2)
  1. DUPIXENT [Suspect]
     Active Substance: DUPILUMAB
     Indication: Dermatitis atopic
     Route: 058
     Dates: start: 202410, end: 202410
  2. DUPIXENT [Suspect]
     Active Substance: DUPILUMAB
     Indication: Eczema
     Dosage: 300 MG, QOW
     Route: 058
     Dates: start: 20240921

REACTIONS (6)
  - Rash pustular [Unknown]
  - Skin exfoliation [Unknown]
  - Swelling [Unknown]
  - Pain [Unknown]
  - Arthralgia [Unknown]
  - Pain [Unknown]

NARRATIVE: CASE EVENT DATE: 20240101
